FAERS Safety Report 9797466 (Version 6)
Quarter: 2014Q2

REPORT INFORMATION
  Report Type: Spontaneous
  Country: JP (occurrence: JP)
  Receive Date: 20140106
  Receipt Date: 20140521
  Transmission Date: 20141212
  Serious: Yes (Other)
  Sender: FDA-Public Use
  Company Number: PHHY2013JP153252

PATIENT
  Age: 82 Year
  Sex: Male
  Weight: 54 kg

DRUGS (8)
  1. LAMISIL [Suspect]
     Indication: CUTANEOUS SPOROTRICHOSIS
     Dosage: 125 MG, DAILY
     Route: 048
     Dates: start: 20131218, end: 20131227
  2. SELARA [Concomitant]
     Indication: HYPERTENSION
     Dosage: 25 MG, DAILY
     Route: 048
     Dates: start: 20110701
  3. ARTIST [Concomitant]
     Indication: HYPERTENSION
     Dosage: 5 MG, UNK
     Route: 048
     Dates: start: 20121022
  4. NORVASC [Concomitant]
     Indication: HYPERTENSION
     Dosage: 2.5 MG, UNK
     Route: 048
     Dates: start: 20121022
  5. MAGLAX [Concomitant]
     Indication: CONSTIPATION
     Dosage: 1500 MG, UNK
     Route: 048
     Dates: start: 20050226
  6. TAKEPRON [Concomitant]
     Indication: GASTROOESOPHAGEAL REFLUX DISEASE
     Dosage: 15 MG, UNK
     Route: 048
     Dates: start: 20050621
  7. CORTRIL [Concomitant]
     Indication: AUTOIMMUNE PANCREATITIS
     Dosage: 20 MG, UNK
     Route: 048
     Dates: start: 20130914
  8. ARICEPT [Concomitant]
     Indication: DEMENTIA
     Dosage: 5 MG, UNK
     Route: 048
     Dates: start: 20131210

REACTIONS (1)
  - Blood alkaline phosphatase increased [Recovered/Resolved]
